FAERS Safety Report 4866007-5 (Version None)
Quarter: 2005Q4

REPORT INFORMATION
  Report Type: 
  Country: None (occurrence: None)
  Receive Date: 20051221
  Receipt Date: 20051212
  Transmission Date: 20060501
  Serious: Yes (Hospitalization)
  Sender: FDA-Public Use
  Company Number: 200514711BCC

PATIENT
  Age: 55 Year
  Sex: Female
  Weight: 113.3993 kg

DRUGS (9)
  1. ALEVE (CAPLET) [Suspect]
     Indication: ANALGESIC EFFECT
     Dosage: 220 MG, QD, ORAL
     Route: 048
     Dates: start: 20050701
  2. ALEVE (CAPLET) [Suspect]
     Indication: PAIN IN EXTREMITY
     Dosage: 220 MG, QD, ORAL
     Route: 048
     Dates: start: 20050701
  3. NAPROXEN SODIUM [Suspect]
     Indication: ANALGESIC EFFECT
     Dosage: 375 MG, TOTAL DAILY, ORAL
     Route: 048
     Dates: start: 20050718
  4. NAPROXEN SODIUM [Suspect]
     Indication: PAIN IN EXTREMITY
     Dosage: 375 MG, TOTAL DAILY, ORAL
     Route: 048
     Dates: start: 20050718
  5. LASIX [Concomitant]
  6. PREVACID [Concomitant]
  7. POTASSIUM CL [Concomitant]
  8. FOLIC ACID [Concomitant]
  9. LIBRIUM [Concomitant]

REACTIONS (8)
  - DEAFNESS UNILATERAL [None]
  - HYPOACUSIS [None]
  - JUGULAR VEIN THROMBOSIS [None]
  - MUSCULOSKELETAL STIFFNESS [None]
  - PAIN IN EXTREMITY [None]
  - PHLEBITIS [None]
  - SHOULDER PAIN [None]
  - SKIN DISCOLOURATION [None]
